FAERS Safety Report 14552339 (Version 1)
Quarter: 2018Q1

REPORT INFORMATION
  Report Type: Spontaneous
  Country: FR (occurrence: FR)
  Receive Date: 20180220
  Receipt Date: 20180220
  Transmission Date: 20180509
  Serious: Yes (Hospitalization)
  Sender: FDA-Public Use
  Company Number: FR-ASTRAZENECA-2018SE18886

PATIENT
  Age: 41 Year
  Sex: Male

DRUGS (1)
  1. XEROQUEL [Suspect]
     Active Substance: QUETIAPINE FUMARATE
     Route: 048

REACTIONS (3)
  - Dyspnoea [Unknown]
  - Drug abuse [Unknown]
  - Nasal septum perforation [Unknown]
